FAERS Safety Report 17903998 (Version 1)
Quarter: 2020Q2

REPORT INFORMATION
  Report Type: Spontaneous
  Country: US (occurrence: US)
  Receive Date: 20200615
  Receipt Date: 20200615
  Transmission Date: 20200714
  Serious: Yes (Other)
  Sender: FDA-Public Use
  Company Number: None

PATIENT
  Age: 56 Year
  Sex: Male
  Weight: 100.8 kg

DRUGS (5)
  1. TRUCONTROL (SUPPLEMENT) [Suspect]
     Active Substance: DIETARY SUPPLEMENT\HERBALS\OCTODRINE HYDROCHLORIDE
     Indication: OBESITY
     Dosage: ?          QUANTITY:1 DF DOSAGE FORM;?
     Route: 048
  2. AMPHETAMINES [Suspect]
     Active Substance: AMPHETAMINE
  3. XELJANZ [Concomitant]
     Active Substance: TOFACITINIB CITRATE
  4. ATORVASTATIN [Concomitant]
     Active Substance: ATORVASTATIN
  5. AMLODAPINE [Concomitant]

REACTIONS (2)
  - Weight increased [None]
  - Amphetamines positive [None]

NARRATIVE: CASE EVENT DATE: 20200615
